FAERS Safety Report 9452424 (Version 2)
Quarter: 2013Q3

REPORT INFORMATION
  Report Type: Spontaneous
  Country: GB (occurrence: GB)
  Receive Date: 20130812
  Receipt Date: 20130819
  Transmission Date: 20140515
  Serious: Yes (Disabling)
  Sender: FDA-Public Use
  Company Number: GB-JNJFOC-20130804417

PATIENT
  Age: 45 Year
  Sex: Female
  Weight: 90 kg

DRUGS (2)
  1. TAPENTADOL [Suspect]
     Indication: FIBROMYALGIA
     Route: 065
     Dates: start: 20130706, end: 20130711
  2. MST CONTINUS [Concomitant]
     Indication: PAIN
     Route: 065

REACTIONS (2)
  - Sleep paralysis [Recovered/Resolved]
  - Fatigue [Recovered/Resolved]
